FAERS Safety Report 7101119-7 (Version None)
Quarter: 2010Q4

REPORT INFORMATION
  Report Type: 
  Country: None (occurrence: None)
  Receive Date: 20101113
  Receipt Date: 20100429
  Transmission Date: 20110411
  Serious: No
  Sender: FDA-Public Use
  Company Number: US-ALLERGAN-1005630US

PATIENT
  Age: 37 Year
  Sex: Female

DRUGS (2)
  1. BOTOXA? [Suspect]
     Indication: SKIN WRINKLING
     Dosage: UNK
     Dates: start: 20100331, end: 20100331
  2. TRAZODONE [Concomitant]

REACTIONS (6)
  - APHONIA [None]
  - DEPRESSION [None]
  - FACIAL PARESIS [None]
  - PERIORBITAL OEDEMA [None]
  - SKIN WRINKLING [None]
  - VIITH NERVE PARALYSIS [None]
